FAERS Safety Report 17709745 (Version 1)
Quarter: 2020Q2

REPORT INFORMATION
  Report Type: Spontaneous
  Country: US (occurrence: US)
  Receive Date: 20200427
  Receipt Date: 20200427
  Transmission Date: 20200714
  Serious: Yes (Hospitalization, Other)
  Sender: FDA-Public Use
  Company Number: US-ROCHE-2585372

PATIENT
  Sex: Female
  Weight: 72.64 kg

DRUGS (5)
  1. BACLOFEN. [Concomitant]
     Active Substance: BACLOFEN
     Indication: MUSCLE SPASMS
     Route: 048
  2. MOBIC [Concomitant]
     Active Substance: MELOXICAM
     Route: 048
  3. OCREVUS [Suspect]
     Active Substance: OCRELIZUMAB
     Indication: RELAPSING-REMITTING MULTIPLE SCLEROSIS
     Route: 042
     Dates: start: 20170222
  4. DITROPAN [Concomitant]
     Active Substance: OXYBUTYNIN CHLORIDE
     Indication: MICTURITION URGENCY
     Route: 048
  5. DALFAMPRIDINE. [Concomitant]
     Active Substance: DALFAMPRIDINE

REACTIONS (18)
  - Skeletal injury [Not Recovered/Not Resolved]
  - Foot fracture [Not Recovered/Not Resolved]
  - Subacute endocarditis [Not Recovered/Not Resolved]
  - Abscess neck [Not Recovered/Not Resolved]
  - Rash [Not Recovered/Not Resolved]
  - Arthritis bacterial [Not Recovered/Not Resolved]
  - Abscess [Not Recovered/Not Resolved]
  - Pain [Not Recovered/Not Resolved]
  - Osteomyelitis [Not Recovered/Not Resolved]
  - Gastric ulcer haemorrhage [Unknown]
  - Back pain [Not Recovered/Not Resolved]
  - Pollakiuria [Not Recovered/Not Resolved]
  - Dyspnoea [Not Recovered/Not Resolved]
  - Nausea [Not Recovered/Not Resolved]
  - Extradural abscess [Not Recovered/Not Resolved]
  - Sepsis [Recovered/Resolved]
  - Joint abscess [Not Recovered/Not Resolved]
  - Muscle spasms [Not Recovered/Not Resolved]
